FAERS Safety Report 7048526-9 (Version None)
Quarter: 2010Q4

REPORT INFORMATION
  Report Type: 
  Country: None (occurrence: None)
  Receive Date: 20101008
  Receipt Date: 20100930
  Transmission Date: 20110411
  Serious: Yes (Other)
  Sender: FDA-Public Use
  Company Number: 2010MA003149

PATIENT
  Age: 77 Year
  Sex: Male

DRUGS (3)
  1. CLONIDINE HCL [Suspect]
     Indication: KNEE ARTHROPLASTY
     Dosage: 30 UG;
  2. ENOXAPARIN SODIUM [Suspect]
     Indication: DEEP VEIN THROMBOSIS
     Dosage: 4000 IU; BID;
  3. ROPIVACAINE (ROPIVACAINE) [Suspect]
     Indication: KNEE ARTHROPLASTY
     Dosage: 25 ML;

REACTIONS (1)
  - RETROPERITONEAL HAEMATOMA [None]
